FAERS Safety Report 17393627 (Version 2)
Quarter: 2020Q1

REPORT INFORMATION
  Report Type: Spontaneous
  Country: RU (occurrence: RU)
  Receive Date: 20200208
  Receipt Date: 20200214
  Transmission Date: 20200409
  Serious: Yes (Death)
  Sender: FDA-Public Use
  Company Number: NVSC2020RU033697

PATIENT
  Age: 60 Year
  Sex: Male

DRUGS (2)
  1. VEROSPIRON [Concomitant]
     Active Substance: SPIRONOLACTONE
     Indication: PRODUCT USED FOR UNKNOWN INDICATION
     Dosage: UNK
     Route: 065
  2. UPERIO [Suspect]
     Active Substance: SACUBITRIL\VALSARTAN
     Indication: PRODUCT USED FOR UNKNOWN INDICATION
     Dosage: 100 MG, BID (MORE THAN A YEAR AGO)
     Route: 048

REACTIONS (1)
  - Acute myocardial infarction [Fatal]
